FAERS Safety Report 10241832 (Version 1)
Quarter: 2014Q2

REPORT INFORMATION
  Report Type: Spontaneous
  Country: JP (occurrence: JP)
  Receive Date: 20140617
  Receipt Date: 20140617
  Transmission Date: 20141212
  Serious: Yes (Other)
  Sender: FDA-Public Use
  Company Number: JP-VERTEX PHARMACEUTICALS INC-2014-002731

PATIENT
  Age: 51 Year
  Sex: Female

DRUGS (1)
  1. TELAVIC [Suspect]
     Indication: HEPATITIS C
     Dosage: UNK MG, UNK
     Route: 048
     Dates: start: 201207, end: 201208

REACTIONS (1)
  - Erythema multiforme [Unknown]
